FAERS Safety Report 13246352 (Version 1)
Quarter: 2017Q1

REPORT INFORMATION
  Report Type: Other
  Country: DE (occurrence: DE)
  Receive Date: 20170217
  Receipt Date: 20170217
  Transmission Date: 20170428
  Serious: Yes (Other)
  Sender: FDA-Public Use
  Company Number: DE-LABORATOIRE HRA PHARMA-1063269

PATIENT
  Age: 0 Day
  Weight: .01 kg

DRUGS (1)
  1. ELLA [Suspect]
     Active Substance: ULIPRISTAL ACETATE
     Route: 064
     Dates: start: 20161206, end: 20161206

REACTIONS (1)
  - Foetal growth restriction [None]
